FAERS Safety Report 21549844 (Version 2)
Quarter: 2023Q1

REPORT INFORMATION
  Report Type: Spontaneous
  Country: US (occurrence: US)
  Receive Date: 20221103
  Receipt Date: 20230103
  Transmission Date: 20230418
  Serious: No
  Sender: FDA-Public Use
  Company Number: US-SA-SAC20221029001405

PATIENT
  Age: 56 Year
  Sex: Male

DRUGS (3)
  1. DUPIXENT [Suspect]
     Active Substance: DUPILUMAB
     Indication: Asthma
     Dosage: 300 MG, QOW
     Route: 058
  2. LOSARTAN [Concomitant]
     Active Substance: LOSARTAN
     Dosage: UNK
  3. FUROSEMIDE [Concomitant]
     Active Substance: FUROSEMIDE
     Dosage: UNK

REACTIONS (4)
  - Orthostatic hypotension [Recovering/Resolving]
  - Nasal congestion [Unknown]
  - Condition aggravated [Unknown]
  - Pruritus [Unknown]
